FAERS Safety Report 25968942 (Version 1)
Quarter: 2025Q4

REPORT INFORMATION
  Report Type: Spontaneous
  Country: US (occurrence: None)
  Receive Date: 20251028
  Receipt Date: 20251028
  Transmission Date: 20260118
  Serious: Yes (Death, Hospitalization)
  Sender: FDA-CTU
  Company Number: None

PATIENT
  Age: 49 Year
  Sex: Female
  Weight: 58.2 kg

DRUGS (3)
  1. CARBOPLATIN [Suspect]
     Active Substance: CARBOPLATIN
     Dates: end: 20250930
  2. TAXOTERE [Suspect]
     Active Substance: DOCETAXEL
     Dates: end: 20250930
  3. PEMBROLIZUMAB [Suspect]
     Active Substance: PEMBROLIZUMAB
     Dates: end: 20250930

REACTIONS (16)
  - Palpitations [None]
  - Syncope [None]
  - Hypotension [None]
  - Ventricular tachycardia [None]
  - Unresponsive to stimuli [None]
  - Anaemia [None]
  - Pyrexia [None]
  - Troponin increased [None]
  - Lactic acidosis [None]
  - Dyskinesia [None]
  - Systemic inflammatory response syndrome [None]
  - Myocarditis [None]
  - Cardiogenic shock [None]
  - Renal failure [None]
  - Hepatic failure [None]
  - Encephalopathy [None]

NARRATIVE: CASE EVENT DATE: 20251020
